FAERS Safety Report 7839984-8 (Version None)
Quarter: 2011Q4

REPORT INFORMATION
  Report Type: 
  Country: None (occurrence: None)
  Receive Date: 20111025
  Receipt Date: 20111017
  Transmission Date: 20120403
  Serious: Yes (Hospitalization)
  Sender: FDA-Public Use
  Company Number: US-BIOGENIDEC-2011BI039725

PATIENT
  Age: 60 Year
  Sex: Male

DRUGS (8)
  1. RESTORIL [Concomitant]
     Dates: end: 20110701
  2. AMBIEN [Concomitant]
     Dates: end: 20110701
  3. AVONEX [Suspect]
     Indication: MULTIPLE SCLEROSIS
     Route: 030
     Dates: start: 20070101, end: 20110717
  4. GABAPENTIN [Concomitant]
     Indication: PARAESTHESIA
     Dates: start: 20080101
  5. VALIUM [Concomitant]
     Dates: end: 20110701
  6. BACLOFEN [Concomitant]
     Indication: MUSCLE SPASMS
     Dates: start: 20080101
  7. SOMA [Concomitant]
     Indication: PAIN
  8. SOMA [Concomitant]
     Indication: MUSCLE RELAXANT THERAPY

REACTIONS (6)
  - INFLUENZA LIKE ILLNESS [None]
  - SUICIDE ATTEMPT [None]
  - DIPLOPIA [None]
  - TREMOR [None]
  - DRUG SCREEN POSITIVE [None]
  - SUICIDAL IDEATION [None]
